FAERS Safety Report 8586058-7 (Version None)
Quarter: 2012Q3

REPORT INFORMATION
  Report Type: 
  Country: None (occurrence: None)
  Receive Date: 20120810
  Receipt Date: 20120806
  Transmission Date: 20120928
  Serious: Yes (Other)
  Sender: FDA-Public Use
  Company Number: US-PFIZER INC-2012123576

PATIENT
  Age: 56 Year
  Sex: Female

DRUGS (5)
  1. ALDACTONE [Suspect]
     Dosage: 25 MG, 2X/DAY
     Route: 048
     Dates: start: 19970101
  2. ESTRING [Suspect]
     Dosage: UNK, AS DIRECTED
  3. LEVOTHYROXINE [Concomitant]
     Dosage: 137 UG, UNK
  4. FLUTICASONE PROPIONATE [Concomitant]
     Dosage: 250/50, UNK
  5. PREMARIN [Suspect]
     Dosage: 1.25 MG, 2X/DAY
     Route: 048

REACTIONS (4)
  - ROAD TRAFFIC ACCIDENT [None]
  - HEADACHE [None]
  - BACK DISORDER [None]
  - NECK INJURY [None]
